FAERS Safety Report 8134744-5 (Version None)
Quarter: 2012Q1

REPORT INFORMATION
  Report Type: 
  Country: None (occurrence: None)
  Receive Date: 20120214
  Receipt Date: 20120203
  Transmission Date: 20120608
  Serious: Yes (Other)
  Sender: FDA-Public Use
  Company Number: GB-JNJFOC-20120203791

PATIENT
  Sex: Male

DRUGS (2)
  1. STELARA [Suspect]
     Route: 058
     Dates: start: 20110601
  2. STELARA [Suspect]
     Indication: PRODUCT USED FOR UNKNOWN INDICATION
     Route: 058
     Dates: start: 20111001

REACTIONS (2)
  - DIARRHOEA [None]
  - FAECAL INCONTINENCE [None]
